FAERS Safety Report 14246990 (Version 2)
Quarter: 2022Q1

REPORT INFORMATION
  Report Type: Spontaneous
  Country: CA (occurrence: CA)
  Receive Date: 20171204
  Receipt Date: 20220301
  Transmission Date: 20220423
  Serious: Yes (Life-Threatening, Hospitalization)
  Sender: FDA-Public Use
  Company Number: CA-PURDUE-CAN-2017-0008139

PATIENT
  Age: 37 Year
  Sex: Female

DRUGS (14)
  1. MORPHINE SULFATE [Interacting]
     Active Substance: MORPHINE SULFATE
     Indication: Product used for unknown indication
     Dosage: 2 MG, UNK
     Route: 058
  2. MORPHINE SULFATE [Interacting]
     Active Substance: MORPHINE SULFATE
     Dosage: 1 MG, UNK
     Route: 042
  3. MORPHINE SULFATE [Interacting]
     Active Substance: MORPHINE SULFATE
     Dosage: 2 MG, UNK
     Route: 065
  4. MORPHINE SULFATE [Interacting]
     Active Substance: MORPHINE SULFATE
     Dosage: 1 MG, UNK
     Route: 037
  5. MORPHINE SULFATE [Interacting]
     Active Substance: MORPHINE SULFATE
     Dosage: 2 MG, UNK
     Route: 058
  6. MORPHINE SULFATE [Interacting]
     Active Substance: MORPHINE SULFATE
     Dosage: 1 MG, UNK
     Route: 037
  7. MORPHINE SULFATE [Interacting]
     Active Substance: MORPHINE SULFATE
     Dosage: 1 MG, UNK
     Route: 042
  8. HYDROMORPHONE HYDROCHLORIDE [Interacting]
     Active Substance: HYDROMORPHONE HYDROCHLORIDE
     Indication: Product used for unknown indication
     Dosage: 2 MG, DAILY
     Route: 065
  9. ACETAMINOPHEN [Interacting]
     Active Substance: ACETAMINOPHEN
     Indication: Product used for unknown indication
     Dosage: 4 DF, DAILY
     Route: 051
  10. BUPIVACAINE [Interacting]
     Active Substance: BUPIVACAINE
     Indication: Product used for unknown indication
     Dosage: 0.75 %, UNK
     Route: 008
  11. DICLOFENAC [Interacting]
     Active Substance: DICLOFENAC
     Indication: Product used for unknown indication
     Dosage: 50 MG, TID
     Route: 065
  12. FENTANYL [Interacting]
     Active Substance: FENTANYL
     Indication: Product used for unknown indication
     Dosage: 0.01 MG, UNK
     Route: 037
  13. KETOROLAC [Interacting]
     Active Substance: KETOROLAC TROMETHAMINE
     Indication: Product used for unknown indication
     Dosage: 30 MG, UNK
     Route: 042
  14. NALOXONE [Interacting]
     Active Substance: NALOXONE
     Indication: Product used for unknown indication
     Dosage: 0.28 MG, UNK
     Route: 065

REACTIONS (6)
  - Unresponsive to stimuli [Unknown]
  - Drug interaction [Unknown]
  - Respiratory depression [Unknown]
  - Respiratory rate decreased [Unknown]
  - Blood pressure increased [Unknown]
  - Maternal exposure during pregnancy [Unknown]
